FAERS Safety Report 14572981 (Version 3)
Quarter: 2018Q2

REPORT INFORMATION
  Report Type: Spontaneous
  Country: CH (occurrence: CH)
  Receive Date: 20180226
  Receipt Date: 20180417
  Transmission Date: 20180711
  Serious: Yes (Other)
  Sender: FDA-Public Use
  Company Number: CH-GILEAD-2018-0319020

PATIENT
  Age: 53 Year
  Sex: Male
  Weight: 82 kg

DRUGS (3)
  1. DACLATASVIR. [Suspect]
     Active Substance: DACLATASVIR
     Indication: CHRONIC HEPATITIS C
     Dosage: UNK
     Route: 065
     Dates: start: 201512, end: 201603
  2. PANTOPRAZOLE [Concomitant]
     Active Substance: PANTOPRAZOLE
     Indication: DUODENITIS
     Dosage: 40 MG, UNK
     Route: 048
     Dates: start: 20140813, end: 201606
  3. SOVALDI [Suspect]
     Active Substance: SOFOSBUVIR
     Indication: CHRONIC HEPATITIS C
     Dosage: UNK
     Route: 065
     Dates: start: 201512, end: 201603

REACTIONS (3)
  - Hepatitis C [Not Recovered/Not Resolved]
  - Drug ineffective [Not Recovered/Not Resolved]
  - Genotype drug resistance test positive [Unknown]

NARRATIVE: CASE EVENT DATE: 201606
